APPROVED DRUG PRODUCT: ALBUTEROL SULFATE
Active Ingredient: ALBUTEROL SULFATE
Strength: EQ 0.042% BASE
Dosage Form/Route: SOLUTION;INHALATION
Application: A211888 | Product #002 | TE Code: AN
Applicant: LUOXIN AUROVITAS PHARMA CHENGDU CO LTD
Approved: Apr 20, 2020 | RLD: No | RS: No | Type: RX